FAERS Safety Report 18607384 (Version 5)
Quarter: 2023Q2

REPORT INFORMATION
  Report Type: Spontaneous
  Country: US (occurrence: US)
  Receive Date: 20201211
  Receipt Date: 20230531
  Transmission Date: 20230721
  Serious: Yes (Other)
  Sender: FDA-Public Use
  Company Number: US-PFIZER INC-2020021142

PATIENT
  Age: 81 Year
  Sex: Female
  Weight: 47.63 kg

DRUGS (3)
  1. RETACRIT [Suspect]
     Active Substance: EPOETIN ALFA-EPBX
     Indication: Nephrogenic anaemia
     Dosage: 40,000 (UNITS/1 ML)
  2. RETACRIT [Suspect]
     Active Substance: EPOETIN ALFA-EPBX
     Indication: Haemoglobin decreased
     Dosage: 20000 IU
  3. OFEV [Concomitant]
     Active Substance: NINTEDANIB
     Indication: Lung disorder

REACTIONS (11)
  - Pain [Unknown]
  - Drug dependence [Unknown]
  - Weight decreased [Unknown]
  - Red blood cell count decreased [Unknown]
  - Haematocrit decreased [Unknown]
  - Confusional state [Unknown]
  - Impaired driving ability [Unknown]
  - Haemoglobin decreased [Unknown]
  - Dizziness [Unknown]
  - Illness [Unknown]
  - Spinal disorder [Unknown]
